FAERS Safety Report 10058724 (Version 2)
Quarter: 2014Q2

REPORT INFORMATION
  Report Type: Spontaneous
  Country: US (occurrence: US)
  Receive Date: 20140404
  Receipt Date: 20140404
  Transmission Date: 20141212
  Serious: No
  Sender: FDA-Public Use
  Company Number: US-GLAXOSMITHKLINE-A1010033A

PATIENT
  Age: 56 Year
  Sex: Female

DRUGS (1)
  1. ALLI [Suspect]
     Indication: WEIGHT LOSS DIET
     Route: 048
     Dates: start: 20130219

REACTIONS (17)
  - Flatulence [Not Recovered/Not Resolved]
  - Rectal discharge [Not Recovered/Not Resolved]
  - Rectal discharge [Not Recovered/Not Resolved]
  - Constipation [Recovered/Resolved]
  - Drug administration error [Unknown]
  - Drug ineffective [Unknown]
  - Product quality issue [Unknown]
  - Haemorrhoids [Unknown]
  - Diarrhoea [Unknown]
  - Frequent bowel movements [Unknown]
  - Weight increased [Unknown]
  - Treatment noncompliance [Unknown]
  - Constipation [Unknown]
  - Flatulence [Unknown]
  - Drug administration error [Unknown]
  - Faecal incontinence [Unknown]
  - Rectal discharge [Unknown]
